FAERS Safety Report 5581554-9 (Version None)
Quarter: 2007Q4

REPORT INFORMATION
  Report Type: 
  Country: None (occurrence: None)
  Receive Date: 20071217
  Receipt Date: 20071217
  Transmission Date: 20080405
  Serious: No
  Sender: FDA-Public Use
  Company Number: None

PATIENT
  Age: 57 Year
  Sex: Male
  Weight: 90.7194 kg

DRUGS (1)
  1. ZOOM TEETH WHITENING SYSTEM [Suspect]
     Indication: TOOTH DISCOLOURATION
     Dates: start: 20071210, end: 20071210

REACTIONS (3)
  - EATING DISORDER [None]
  - PAIN [None]
  - THERMAL BURN [None]
